FAERS Safety Report 10264942 (Version 1)
Quarter: 2014Q2

REPORT INFORMATION
  Report Type: Report from Study
  Country: FR (occurrence: None)
  Receive Date: 20140624
  Receipt Date: 20140624
  Transmission Date: 20141212
  Serious: Yes (Other)
  Sender: FDA-Public Use
  Company Number: ADR-2014-01057

PATIENT
  Sex: Male

DRUGS (2)
  1. LIORESAL [Suspect]
  2. BACLOFEN [Suspect]
     Indication: MUSCLE SPASTICITY

REACTIONS (2)
  - Generalised oedema [None]
  - Drug hypersensitivity [None]
